FAERS Safety Report 9411395 (Version 1)
Quarter: 2013Q3

REPORT INFORMATION
  Report Type: Spontaneous
  Country: KR (occurrence: KR)
  Receive Date: 20130722
  Receipt Date: 20130722
  Transmission Date: 20140515
  Serious: Yes (Other)
  Sender: FDA-Public Use
  Company Number: PHHY2013KR075407

PATIENT
  Age: 68 Year
  Sex: Female

DRUGS (4)
  1. RIFAMPICIN [Suspect]
     Dosage: 600 MG, QD
     Route: 048
  2. AMIKACIN [Concomitant]
     Dosage: 250 MG, Q8H
     Route: 042
  3. CEFOXITIN [Concomitant]
     Dosage: 3 G, Q6H
  4. CLARITHROMYCIN [Concomitant]
     Dosage: 500 MG, Q12H

REACTIONS (1)
  - Hepatotoxicity [Unknown]
